FAERS Safety Report 26181528 (Version 1)
Quarter: 2025Q4

REPORT INFORMATION
  Report Type: Spontaneous
  Country: PR (occurrence: PR)
  Receive Date: 20251221
  Receipt Date: 20251221
  Transmission Date: 20260119
  Serious: No
  Sender: ANI
  Company Number: PR-ANIPHARMA-2025-PR-000123

PATIENT
  Sex: Female

DRUGS (1)
  1. CORTICOTROPIN [Suspect]
     Active Substance: CORTICOTROPIN
     Indication: Multiple sclerosis
     Dosage: INJECTED SUB-Q DAILY
     Route: 058
     Dates: start: 20251017

REACTIONS (3)
  - Multiple sclerosis relapse [Unknown]
  - Hair growth abnormal [Unknown]
  - Abnormal weight gain [Unknown]
